FAERS Safety Report 8014427-2 (Version None)
Quarter: 2011Q4

REPORT INFORMATION
  Report Type: 
  Country: None (occurrence: None)
  Receive Date: 20111229
  Receipt Date: 20111221
  Transmission Date: 20120403
  Serious: Yes (Other)
  Sender: FDA-Public Use
  Company Number: PHHY2011IN111204

PATIENT
  Age: 24 Year
  Sex: Male

DRUGS (2)
  1. AZATHIOPRINE [Suspect]
     Indication: TYPE 2 LEPRA REACTION
     Dosage: 50 MG, BID
  2. PREDNISOLONE [Suspect]
     Indication: LEPROSY

REACTIONS (5)
  - GRANULOMA SKIN [None]
  - CHROMOBLASTOMYCOSIS [None]
  - PAPULE [None]
  - HYPHAEMA [None]
  - BONE MARROW FAILURE [None]
